FAERS Safety Report 20618441 (Version 1)
Quarter: 2022Q1

REPORT INFORMATION
  Report Type: Spontaneous
  Country: AU (occurrence: None)
  Receive Date: 20220321
  Receipt Date: 20220321
  Transmission Date: 20220424
  Serious: Yes (Hospitalization, Other)
  Sender: FDA-Public Use
  Company Number: AU-Unichem Pharmaceuticals (USA) Inc-UCM202203-000274

PATIENT
  Age: 48 Year
  Sex: Male

DRUGS (3)
  1. TRAMADOL HCL [Suspect]
     Active Substance: TRAMADOL HYDROCHLORIDE
     Indication: Neuropathy peripheral
  2. TRAMADOL HCL [Suspect]
     Active Substance: TRAMADOL HYDROCHLORIDE
     Dosage: 2.4-3 G
  3. TRAMADOL HCL [Suspect]
     Active Substance: TRAMADOL HYDROCHLORIDE
     Dosage: CONSUMED 400MG OF TRAMADOL 6 HOURS PRIOR TO HIS EXAMINATION AND AROUND 800 MG A DAY BEFORE.

REACTIONS (3)
  - Hypertensive crisis [Recovered/Resolved]
  - Drug dependence [Unknown]
  - Overdose [Unknown]
